FAERS Safety Report 10217113 (Version 2)
Quarter: 2014Q3

REPORT INFORMATION
  Report Type: Spontaneous
  Country: BE (occurrence: BE)
  Receive Date: 20140604
  Receipt Date: 20140707
  Transmission Date: 20150326
  Serious: Yes (Life-Threatening, Hospitalization, Other)
  Sender: FDA-Public Use
  Company Number: BE-ABBVIE-14P-013-1242088-00

PATIENT
  Sex: Male

DRUGS (3)
  1. HUMIRA [Suspect]
     Active Substance: ADALIMUMAB
     Indication: CROHN^S DISEASE
     Route: 058
     Dates: start: 200802, end: 201404
  2. GANCICLOVIR [Concomitant]
     Active Substance: GANCICLOVIR
     Indication: CYTOMEGALOVIRUS INFECTION
     Dosage: 365MG (5MG/KG)
     Route: 042
     Dates: start: 20140502, end: 20140522
  3. ZANTAC [Suspect]
     Active Substance: RANITIDINE HYDROCHLORIDE
     Indication: PRODUCT USED FOR UNKNOWN INDICATION

REACTIONS (9)
  - Pancytopenia [Recovering/Resolving]
  - Cytomegalovirus infection [Recovering/Resolving]
  - Pyrexia [Recovering/Resolving]
  - Hepatic function abnormal [Recovering/Resolving]
  - Cough [Recovering/Resolving]
  - Malaise [Recovering/Resolving]
  - Myalgia [Recovering/Resolving]
  - Basal cell carcinoma [Unknown]
  - Histiocytosis haematophagic [Recovering/Resolving]

NARRATIVE: CASE EVENT DATE: 2013
